FAERS Safety Report 9851170 (Version 1)
Quarter: 2014Q1

REPORT INFORMATION
  Report Type: Spontaneous
  Country: US (occurrence: US)
  Receive Date: 20140128
  Receipt Date: 20140128
  Transmission Date: 20141002
  Serious: Yes (Other)
  Sender: FDA-Public Use
  Company Number: US-SANOFI-AVENTIS-2013SA070990

PATIENT
  Age: 65 Year
  Sex: Female

DRUGS (3)
  1. LASIX [Suspect]
     Indication: PRODUCT USED FOR UNKNOWN INDICATION
     Route: 048
     Dates: end: 20130619
  2. DRUG USED IN DIABETES [Suspect]
     Indication: TYPE 2 DIABETES MELLITUS
     Route: 048
     Dates: start: 201306, end: 20130619
  3. ACE INHIBITOR NOS [Concomitant]
     Route: 048

REACTIONS (1)
  - Dehydration [Unknown]
